FAERS Safety Report 12504452 (Version 10)
Quarter: 2017Q3

REPORT INFORMATION
  Report Type: Spontaneous
  Country: US (occurrence: US)
  Receive Date: 20160628
  Receipt Date: 20170801
  Transmission Date: 20171127
  Serious: Yes (Hospitalization, Congenital Anomaly, Other)
  Sender: FDA-Public Use
  Company Number: PHHY2015US133560

PATIENT
  Sex: Female

DRUGS (2)
  1. ZOFRAN ODT [Suspect]
     Active Substance: ONDANSETRON HYDROCHLORIDE
     Indication: FOETAL EXPOSURE DURING PREGNANCY
     Dosage: MOTHER DOSE: 4 MG, UNK
     Route: 064
  2. ZOFRAN [Suspect]
     Active Substance: ONDANSETRON HYDROCHLORIDE
     Indication: FOETAL EXPOSURE DURING PREGNANCY
     Dosage: MOTHER^S DOSE: 4 MG, UNK
     Route: 064

REACTIONS (53)
  - Left-to-right cardiac shunt [Unknown]
  - Retching [Unknown]
  - Gastrooesophageal reflux disease [Unknown]
  - Urinary tract infection [Unknown]
  - Coagulopathy [Unknown]
  - Injury [Unknown]
  - Pain [Unknown]
  - Transposition of the great vessels [Unknown]
  - Laryngomalacia [Unknown]
  - Apnoea [Unknown]
  - Respiratory distress [Unknown]
  - Pulmonary haemorrhage [Unknown]
  - Anaemia [Unknown]
  - Pericardial effusion [Unknown]
  - Left ventricular enlargement [Unknown]
  - Hypoxia [Unknown]
  - Cardiac murmur [Unknown]
  - Ventricular septal defect [Unknown]
  - Respiratory arrest [Recovered/Resolved]
  - Sepsis neonatal [Unknown]
  - Failure to thrive [Unknown]
  - Hypotonia neonatal [Unknown]
  - Emotional distress [Unknown]
  - Upper respiratory tract infection [Unknown]
  - Tracheitis [Recovered/Resolved]
  - Tachypnoea [Unknown]
  - Atrial septal defect [Unknown]
  - Right aortic arch [Unknown]
  - Pneumonia [Unknown]
  - Hypoglycaemia neonatal [Unknown]
  - Chylothorax [Unknown]
  - Neonatal hypotension [Recovered/Resolved]
  - Constipation [Unknown]
  - Congenital tracheomalacia [Unknown]
  - Mitochondrial encephalomyopathy [Unknown]
  - Foetal exposure during pregnancy [Unknown]
  - Hypothermia neonatal [Unknown]
  - Hypokalaemia [Unknown]
  - Cardiomegaly [Unknown]
  - Haemoptysis [Unknown]
  - Developmental delay [Unknown]
  - Vascular malformation [Unknown]
  - Dysmorphism [Unknown]
  - Choking [Unknown]
  - Foetal growth restriction [Unknown]
  - Deafness [Unknown]
  - Macrocephaly [Unknown]
  - Apparent life threatening event [Unknown]
  - Cyanosis neonatal [Unknown]
  - Seizure [Unknown]
  - Mitral valve incompetence [Unknown]
  - Tricuspid valve incompetence [Unknown]
  - Acute respiratory failure [Unknown]
